FAERS Safety Report 4545339-4 (Version None)
Quarter: 2004Q4

REPORT INFORMATION
  Report Type: 
  Country: None (occurrence: None)
  Receive Date: 20041222
  Receipt Date: 20040630
  Transmission Date: 20050328
  Serious: Yes (Hospitalization)
  Sender: FDA-Public Use
  Company Number: US96063109A

PATIENT
  Sex: Female
  Weight: 95 kg

DRUGS (12)
  1. HUMULIN R [Suspect]
     Indication: DIABETES MELLITUS
  2. HUMALOG [Suspect]
     Dates: start: 20040221
  3. PREDNISONE [Concomitant]
  4. K-DUR 10 [Concomitant]
  5. PRILOSEC [Concomitant]
  6. SPIRONOLACTONE [Concomitant]
  7. SYNTHROID [Concomitant]
  8. LASIX [Concomitant]
  9. SLO-BID [Concomitant]
  10. SEREVENT [Concomitant]
  11. STARLIX [Concomitant]
  12. VELOSULIN [Concomitant]

REACTIONS (12)
  - ANAPHYLACTIC SHOCK [None]
  - ASTHMA [None]
  - BLOOD GLUCOSE INCREASED [None]
  - BREAST CANCER [None]
  - COUGH [None]
  - EMBOLISM [None]
  - FIBROMYALGIA [None]
  - GOUT [None]
  - NAUSEA [None]
  - OSTEOPOROSIS [None]
  - VOMITING [None]
  - WHEEZING [None]
